FAERS Safety Report 20021258 (Version 1)
Quarter: 2021Q4

REPORT INFORMATION
  Report Type: Report from Study
  Country: GB (occurrence: GB)
  Receive Date: 20211101
  Receipt Date: 20211101
  Transmission Date: 20220303
  Serious: Yes (Death)
  Sender: FDA-Public Use
  Company Number: GB-TEVA-2021-GB-1965487

PATIENT
  Age: 46 Year
  Sex: Male

DRUGS (1)
  1. AJOVY [Suspect]
     Active Substance: FREMANEZUMAB-VFRM
     Route: 065

REACTIONS (1)
  - Accident [Fatal]

NARRATIVE: CASE EVENT DATE: 20210101
